FAERS Safety Report 9860880 (Version 1)
Quarter: 2014Q1

REPORT INFORMATION
  Report Type: Spontaneous
  Country: US (occurrence: None)
  Receive Date: 20140131
  Receipt Date: 20140131
  Transmission Date: 20141002
  Serious: Yes (Disabling)
  Sender: FDA-Public Use
  Company Number: None

PATIENT
  Age: 59 Year
  Sex: Female
  Weight: 86.18 kg

DRUGS (1)
  1. SERTRALINE HCL [Suspect]
     Indication: MENOPAUSE
     Dosage: 1 ONCE DAILY TAKEN BY MOUTH
     Route: 048
     Dates: start: 20131219, end: 20140102

REACTIONS (5)
  - Dyspepsia [None]
  - Burning sensation [None]
  - Vomiting [None]
  - Malaise [None]
  - Oesophageal pain [None]
